FAERS Safety Report 8319758-4 (Version None)
Quarter: 2012Q2

REPORT INFORMATION
  Report Type: 
  Country: None (occurrence: None)
  Receive Date: 20120427
  Receipt Date: 20120417
  Transmission Date: 20120825
  Serious: Yes (Hospitalization, Other)
  Sender: FDA-Public Use
  Company Number: IN-ABBOTT-11P-078-0834565-00

PATIENT
  Age: 46 Year
  Sex: Female
  Weight: 39 kg

DRUGS (24)
  1. EFAVIRENZ [Concomitant]
     Indication: HIV INFECTION
     Route: 048
     Dates: start: 20070309, end: 20080921
  2. VITAMIN B-12 [Concomitant]
     Indication: PRODUCT USED FOR UNKNOWN INDICATION
     Dates: start: 20101129
  3. ACETAMINOPHEN [Concomitant]
     Indication: ARTHRALGIA
     Dates: start: 20110923, end: 20110929
  4. TENOFOVIR DF + EMTRICITABINE [Concomitant]
     Indication: HIV INFECTION
     Dosage: 200/300 MILLIGRAM
     Route: 048
     Dates: start: 20100811, end: 20110719
  5. FERROUS FUMARATE [Concomitant]
     Indication: PRODUCT USED FOR UNKNOWN INDICATION
     Dates: start: 20101129
  6. LAMIVUDINE + ADEFOVIR DIPIVOXIL [Concomitant]
     Dates: start: 20120211
  7. HYDROXYZINE HCL [Concomitant]
     Indication: PRODUCT USED FOR UNKNOWN INDICATION
     Dates: start: 20110520
  8. ACETAMINOPHEN [Concomitant]
     Indication: PYREXIA
     Dates: start: 20111007
  9. ATAZANAVIR SULFATE [Concomitant]
     Indication: HIV INFECTION
     Route: 048
     Dates: start: 20080922, end: 20110719
  10. LAMIVUDINE + ADEFOVIR DIPIVOXIL [Concomitant]
     Dates: start: 20120208, end: 20120211
  11. ATAZANAVIR SULFATE [Concomitant]
     Dates: start: 20120224
  12. RITONAVIR [Suspect]
     Indication: HIV INFECTION
     Route: 048
     Dates: start: 20080922, end: 20100325
  13. RITONAVIR [Suspect]
     Route: 048
     Dates: start: 20100326, end: 20100802
  14. LAMIVUDINE + ZIDOVUDINE [Concomitant]
     Indication: HIV INFECTION
     Dosage: 150/300 MG
     Route: 048
     Dates: start: 20070309, end: 20100802
  15. TRIMETHOPRIM 160 MG, SULPHAMETHAXAZOLE 800 MG [Concomitant]
     Indication: ROUTINE HEALTH MAINTENANCE
     Dosage: TAB
     Dates: start: 20101129
  16. ACETAMINOPHEN [Concomitant]
     Indication: HEADACHE
     Dosage: TABLET
     Dates: start: 20110909, end: 20110909
  17. LAMIVUDINE + ADEFOVIR DIPIVOXIL [Concomitant]
     Indication: HIV INFECTION
     Dates: start: 20111230, end: 20120208
  18. RITONAVIR [Suspect]
     Dates: start: 20100811
  19. TENOFOVIR DISOPROXIL FUMARATE [Concomitant]
     Indication: HIV INFECTION
     Route: 048
     Dates: start: 20080922, end: 20100802
  20. VITAMIN B12 15 MCG, FERROUS FUMARATE 0.3G, FOLIC ACID 1.5 MG [Concomitant]
     Indication: ROUTINE HEALTH MAINTENANCE
     Dosage: CAP
     Dates: start: 20101129
  21. FOLIC ACID [Concomitant]
     Indication: PRODUCT USED FOR UNKNOWN INDICATION
     Dates: start: 20101129
  22. LAMIVUDINE + ZIDOVUDINE [Concomitant]
     Route: 048
     Dates: start: 20080922, end: 20100802
  23. AMOROLFINE HYDROCHLORIDE [Concomitant]
     Indication: PRODUCT USED FOR UNKNOWN INDICATION
     Dates: start: 20110520
  24. DIDANOSINE [Concomitant]
     Indication: HIV INFECTION
     Dates: start: 20120320

REACTIONS (7)
  - ANAEMIA [None]
  - LOWER RESPIRATORY TRACT INFECTION [None]
  - EXTRAPULMONARY TUBERCULOSIS [None]
  - VIROLOGIC FAILURE [None]
  - HIV PERIPHERAL NEUROPATHY [None]
  - PULMONARY TUBERCULOSIS [None]
  - DRUG HYPERSENSITIVITY [None]
